FAERS Safety Report 8772097 (Version 2)
Quarter: 2013Q4

REPORT INFORMATION
  Report Type: Spontaneous
  Country: US (occurrence: US)
  Receive Date: 20120906
  Receipt Date: 20131101
  Transmission Date: 20140711
  Serious: No
  Sender: FDA-Public Use
  Company Number: US-009507513-1209USA000290

PATIENT
  Sex: Female

DRUGS (1)
  1. COSOPT [Suspect]
     Indication: BLOOD PRESSURE ABNORMAL
     Dosage: 4 DROPS, BID
     Route: 047

REACTIONS (2)
  - Drug ineffective [Unknown]
  - Overdose [Unknown]
